FAERS Safety Report 12955872 (Version 1)
Quarter: 2016Q4

REPORT INFORMATION
  Report Type: Spontaneous
  Country: IT (occurrence: IT)
  Receive Date: 20161118
  Receipt Date: 20161118
  Transmission Date: 20170207
  Serious: Yes (Other)
  Sender: FDA-Public Use
  Company Number: IT-PFIZER INC-2016534685

PATIENT
  Sex: Male

DRUGS (5)
  1. SEACOR [Concomitant]
     Active Substance: OMEGA-3 FATTY ACIDS
     Dosage: 1000 MG, UNK
  2. FOSTER /00500401/ [Concomitant]
     Active Substance: PIROXICAM
     Dosage: UNK
  3. TOTALIP [Suspect]
     Active Substance: ATORVASTATIN
     Dosage: UNK
  4. GAVISCON ADVANCE [Concomitant]
     Active Substance: POTASSIUM BICARBONATE\SODIUM ALGINATE
     Dosage: 1 DF, UNK
  5. TOTALIP [Suspect]
     Active Substance: ATORVASTATIN
     Dosage: 10 MG, DAILY
     Dates: start: 20160101, end: 20160908

REACTIONS (1)
  - Hyperbilirubinaemia [Recovered/Resolved]
